FAERS Safety Report 16101528 (Version 1)
Quarter: 2019Q1

REPORT INFORMATION
  Report Type: Spontaneous
  Country: US (occurrence: US)
  Receive Date: 20190321
  Receipt Date: 20190321
  Transmission Date: 20190418
  Serious: No
  Sender: FDA-Public Use
  Company Number: US-THE RITEDOSE CORPORATION-2018RIT000146

PATIENT

DRUGS (4)
  1. MUCINEX [Interacting]
     Active Substance: GUAIFENESIN
     Indication: PRODUCT USED FOR UNKNOWN INDICATION
     Dosage: UNK
     Route: 048
  2. IPRATROPIUM BROMIDE INHALATION SOLUTION [Suspect]
     Active Substance: IPRATROPIUM BROMIDE
     Indication: CHRONIC OBSTRUCTIVE PULMONARY DISEASE
     Dosage: 1 VIAL AS DIRECTED
     Route: 055
     Dates: start: 2012
  3. TYLENOL [Concomitant]
     Active Substance: ACETAMINOPHEN
     Indication: PRODUCT USED FOR UNKNOWN INDICATION
     Dosage: UNK, PRN
     Route: 048
  4. VALIUM [Concomitant]
     Active Substance: DIAZEPAM
     Indication: PANIC ATTACK
     Dosage: 1.25 MG, QD
     Route: 048

REACTIONS (2)
  - Choking [Unknown]
  - Panic attack [Unknown]
